FAERS Safety Report 13561562 (Version 2)
Quarter: 2017Q2

REPORT INFORMATION
  Report Type: Report from Study
  Country: US (occurrence: US)
  Receive Date: 20170518
  Receipt Date: 20170621
  Transmission Date: 20170830
  Serious: Yes (Other)
  Sender: FDA-Public Use
  Company Number: US-TAKEDA-2017TUS010938

PATIENT
  Sex: Female

DRUGS (1)
  1. VEDOLIZUMAB [Suspect]
     Active Substance: VEDOLIZUMAB
     Indication: COLITIS ULCERATIVE
     Dosage: UNK
     Route: 042

REACTIONS (4)
  - Deep vein thrombosis [Unknown]
  - Headache [Unknown]
  - Knee operation [Unknown]
  - Gastrooesophageal reflux disease [Unknown]
